FAERS Safety Report 7019563-5 (Version None)
Quarter: 2010Q3

REPORT INFORMATION
  Report Type: 
  Country: None (occurrence: None)
  Receive Date: 20100928
  Receipt Date: 20100928
  Transmission Date: 20110219
  Serious: No
  Sender: FDA-Public Use
  Company Number: None

PATIENT
  Age: 54 Year
  Sex: Female
  Weight: 123.832 kg

DRUGS (2)
  1. OXYCONTIN [Suspect]
     Indication: ARTHRALGIA
     Dosage: 80MG 1 BID PO
     Route: 048
     Dates: start: 20100923, end: 20100925
  2. OXYCONTIN [Suspect]
     Indication: OSTEOARTHRITIS
     Dosage: 80MG 1 BID PO
     Route: 048
     Dates: start: 20100923, end: 20100925

REACTIONS (4)
  - ABNORMAL BEHAVIOUR [None]
  - DIZZINESS [None]
  - INADEQUATE ANALGESIA [None]
  - PRODUCT SUBSTITUTION ISSUE [None]
